FAERS Safety Report 22640406 (Version 1)
Quarter: 2023Q2

REPORT INFORMATION
  Report Type: Spontaneous
  Country: US (occurrence: None)
  Receive Date: 20230623
  Receipt Date: 20230623
  Transmission Date: 20230722
  Serious: Yes (Hospitalization)
  Sender: FDA-Public Use
  Company Number: None

PATIENT
  Sex: Male

DRUGS (3)
  1. TRACLEER [Suspect]
     Active Substance: BOSENTAN
     Indication: Pulmonary arterial hypertension
     Dosage: 16MG TWICE DAILY J-TUBE?
     Route: 050
     Dates: start: 20230410
  2. REMODULIN [Suspect]
     Active Substance: TREPROSTINIL
  3. SILDENEFIL SUSPENSION [Concomitant]

REACTIONS (1)
  - Hypoxia [None]
